FAERS Safety Report 16235885 (Version 2)
Quarter: 2019Q2

REPORT INFORMATION
  Report Type: Report from Study
  Country: FR (occurrence: FR)
  Receive Date: 20190424
  Receipt Date: 20190528
  Transmission Date: 20190711
  Serious: Yes (Hospitalization)
  Sender: FDA-Public Use
  Company Number: FR-ROCHE-2307216

PATIENT
  Age: 66 Year
  Sex: Male
  Weight: 77 kg

DRUGS (3)
  1. OBINUTUZUMAB. [Suspect]
     Active Substance: OBINUTUZUMAB
     Indication: LYMPHOMA
     Dosage: DAILY DOSE BEFORE SAE: 1000 MG?LAST ADMINISTRATION BEFORE SAE: 20/FEB/2019
     Route: 065
     Dates: start: 20180926
  2. ATEZOLIZUMAB. [Suspect]
     Active Substance: ATEZOLIZUMAB
     Indication: LYMPHOMA
     Dosage: DAILY DOSE BEFORE SAE: 1200 MG?LAST ADMINISTRATION BEFORE SAE: 21/FEB/2019
     Route: 065
     Dates: start: 20180927
  3. VENETOCLAX. [Suspect]
     Active Substance: VENETOCLAX
     Indication: LYMPHOMA
     Dosage: DAILY DOSE BEFORE SAE: 800 MG?LAST ADMINISTRATION BEFORE SAE: APR/2019
     Route: 065
     Dates: start: 20181003, end: 201904

REACTIONS (1)
  - General physical health deterioration [Recovered/Resolved]

NARRATIVE: CASE EVENT DATE: 20190416
